FAERS Safety Report 5504329-5 (Version None)
Quarter: 2007Q4

REPORT INFORMATION
  Report Type: 
  Country: None (occurrence: None)
  Receive Date: 20071101
  Receipt Date: 20071022
  Transmission Date: 20080405
  Serious: Yes (Other)
  Sender: FDA-Public Use
  Company Number: FR-PFIZER INC-2007088522

PATIENT
  Age: 60 Year
  Sex: Female

DRUGS (3)
  1. LINEZOLID [Suspect]
     Indication: INFECTION
     Route: 042
  2. FORTUM [Concomitant]
  3. TAZOCILLINE [Concomitant]

REACTIONS (2)
  - CHOLESTASIS [None]
  - LACTIC ACIDOSIS [None]
